FAERS Safety Report 7124387-4 (Version None)
Quarter: 2010Q4

REPORT INFORMATION
  Report Type: 
  Country: None (occurrence: None)
  Receive Date: 20101126
  Receipt Date: 20101119
  Transmission Date: 20110411
  Serious: Yes (Hospitalization)
  Sender: FDA-Public Use
  Company Number: PHHO2010US16633

PATIENT
  Sex: Male
  Weight: 68.6 kg

DRUGS (3)
  1. ZOLEDRONATE T29581+SOLINF [Suspect]
     Indication: PROSTATE CANCER
     Dosage: 4 MG, UNK
     Route: 042
     Dates: start: 20101014
  2. VITAMIN D [Concomitant]
  3. CALCIUM [Concomitant]

REACTIONS (3)
  - LUNG INFILTRATION [None]
  - PNEUMONIA [None]
  - PNEUMONITIS [None]
